FAERS Safety Report 17807055 (Version 2)
Quarter: 2022Q1

REPORT INFORMATION
  Report Type: Spontaneous
  Country: US (occurrence: US)
  Receive Date: 20200520
  Receipt Date: 20220217
  Transmission Date: 20220423
  Serious: No
  Sender: FDA-Public Use
  Company Number: US-VERTEX PHARMACEUTICALS-2020-011002

PATIENT
  Age: 27 Year
  Sex: Female
  Weight: 52 kg

DRUGS (27)
  1. TRIKAFTA [Suspect]
     Active Substance: ELEXACAFTOR\IVACAFTOR\TEZACAFTOR
     Indication: Cystic fibrosis
     Dosage: 2 TABS (100 MG ELEXACAFTOR/ 50 MG TEZACAFTOR/ 75 MG IVACAFTOR) ON MON AND THURS
     Route: 048
     Dates: start: 20200309, end: 20200416
  2. TRIKAFTA [Suspect]
     Active Substance: ELEXACAFTOR\IVACAFTOR\TEZACAFTOR
     Dosage: UNK
     Route: 048
     Dates: start: 20210908
  3. ACETAMINOPHEN [Concomitant]
     Active Substance: ACETAMINOPHEN
  4. CYCLOSPORINE [Concomitant]
     Active Substance: CYCLOSPORINE
  5. VITAMIN D3 [Concomitant]
     Active Substance: CHOLECALCIFEROL
  6. ACTIGALL [Concomitant]
     Active Substance: URSODIOL
  7. TRAZODONE HCL [Concomitant]
     Active Substance: TRAZODONE HYDROCHLORIDE
  8. TOBI PODHALER [Concomitant]
     Active Substance: TOBRAMYCIN
  9. SIROLIMUS [Concomitant]
     Active Substance: SIROLIMUS
  10. OMEPRAZOLE [Concomitant]
     Active Substance: OMEPRAZOLE
  11. PREVYMIS [Concomitant]
     Active Substance: LETERMOVIR
  12. PREDNISONE [Concomitant]
     Active Substance: PREDNISONE
  13. POSACONAZOLE [Concomitant]
     Active Substance: POSACONAZOLE
  14. CELLCEPT [Concomitant]
     Active Substance: MYCOPHENOLATE MOFETIL
  15. MELATONIN [Concomitant]
     Active Substance: MELATONIN
  16. LUNESTA [Concomitant]
     Active Substance: ESZOPICLONE
  17. IMITREX [Concomitant]
     Active Substance: SUMATRIPTAN SUCCINATE
  18. GABAPENTIN [Concomitant]
     Active Substance: GABAPENTIN
  19. FIORICET [Concomitant]
     Active Substance: ACETAMINOPHEN\BUTALBITAL\CAFFEINE
     Dosage: 50-300-40
  20. GENGRAF [Concomitant]
     Active Substance: CYCLOSPORINE
  21. CREON [Concomitant]
     Active Substance: PANCRELIPASE AMYLASE\PANCRELIPASE LIPASE\PANCRELIPASE PROTEASE
     Dosage: 24-76-120K DR,
  22. CLARITHROMYCIN [Concomitant]
     Active Substance: CLARITHROMYCIN
  23. CELECOXIB [Concomitant]
     Active Substance: CELECOXIB
  24. CARVEDILOL [Concomitant]
     Active Substance: CARVEDILOL
  25. ATIVAN [Concomitant]
     Active Substance: LORAZEPAM
  26. ASPIRIN [Concomitant]
     Active Substance: ASPIRIN
  27. AMITRIPTYLINE [Concomitant]
     Active Substance: AMITRIPTYLINE

REACTIONS (2)
  - Migraine [Recovered/Resolved]
  - Blood creatinine increased [Unknown]

NARRATIVE: CASE EVENT DATE: 20200301
